FAERS Safety Report 11090912 (Version 1)
Quarter: 2015Q2

REPORT INFORMATION
  Report Type: Spontaneous
  Country: US (occurrence: None)
  Receive Date: 20150504
  Receipt Date: 20150504
  Transmission Date: 20150821
  Serious: No
  Sender: FDA-Public Use
  Company Number: None

PATIENT
  Age: 74 Year
  Sex: Male
  Weight: 97.98 kg

DRUGS (1)
  1. POLY IRON [Suspect]
     Active Substance: DIETARY SUPPLEMENT
     Indication: HAEMOGLOBIN DECREASED
     Route: 048
     Dates: start: 201501, end: 201504

REACTIONS (4)
  - Haemoglobin decreased [None]
  - Faeces discoloured [None]
  - Drug ineffective [None]
  - Product quality issue [None]

NARRATIVE: CASE EVENT DATE: 201504
